FAERS Safety Report 5489395-8 (Version None)
Quarter: 2007Q4

REPORT INFORMATION
  Report Type: 
  Country: None (occurrence: None)
  Receive Date: 20071018
  Receipt Date: 20071008
  Transmission Date: 20080405
  Serious: Yes (Other)
  Sender: FDA-Public Use
  Company Number: BE-AMGEN-UK244719

PATIENT
  Sex: Male
  Weight: 59 kg

DRUGS (5)
  1. ARANESP [Suspect]
     Indication: RENAL FAILURE CHRONIC
     Route: 042
     Dates: start: 20030214
  2. CALCIUM CARBONATE [Concomitant]
     Route: 048
     Dates: start: 20070328
  3. LORAZEPAM [Concomitant]
     Route: 048
     Dates: start: 20070527
  4. CORDARONE [Concomitant]
     Route: 048
     Dates: start: 20040308
  5. MOLSIDOMINE [Concomitant]
     Route: 048
     Dates: start: 20050126

REACTIONS (8)
  - AORTIC ANEURYSM [None]
  - ATRIAL FIBRILLATION [None]
  - CEREBRAL ARTERY EMBOLISM [None]
  - CEREBRAL ISCHAEMIA [None]
  - COORDINATION ABNORMAL [None]
  - HAEMOGLOBIN DECREASED [None]
  - MENTAL IMPAIRMENT [None]
  - OCCULT BLOOD POSITIVE [None]
